FAERS Safety Report 25009585 (Version 1)
Quarter: 2025Q1

REPORT INFORMATION
  Report Type: Report from Study
  Country: ES (occurrence: ES)
  Receive Date: 20250225
  Receipt Date: 20250225
  Transmission Date: 20250409
  Serious: Yes (Other)
  Sender: ABBVIE
  Company Number: ES-ABBVIE-6139129

PATIENT
  Sex: Female
  Weight: 50 kg

DRUGS (2)
  1. CARBIDOPA\LEVODOPA [Suspect]
     Active Substance: CARBIDOPA\LEVODOPA
     Indication: Parkinson^s disease
     Route: 050
     Dates: start: 20250210
  2. CARBIDOPA\LEVODOPA [Suspect]
     Active Substance: CARBIDOPA\LEVODOPA

REACTIONS (6)
  - Procedural pain [Recovered/Resolved]
  - Dyskinesia [Unknown]
  - Loss of personal independence in daily activities [Unknown]
  - Flatulence [Unknown]
  - Device issue [Unknown]
  - Nervousness [Unknown]

NARRATIVE: CASE EVENT DATE: 20250201
